FAERS Safety Report 6408188-8 (Version None)
Quarter: 2009Q4

REPORT INFORMATION
  Report Type: 
  Country: None (occurrence: None)
  Receive Date: 20091021
  Receipt Date: 20091008
  Transmission Date: 20100525
  Serious: Yes (Hospitalization)
  Sender: FDA-Public Use
  Company Number: PL-ROCHE-640860

PATIENT
  Age: 47 Year
  Sex: Female

DRUGS (6)
  1. CELLCEPT [Suspect]
     Route: 065
     Dates: start: 20050101
  2. CELLCEPT [Suspect]
     Route: 065
  3. TACROLIMUS [Suspect]
     Route: 065
     Dates: start: 20050101
  4. ENCORTON [Suspect]
     Route: 065
     Dates: start: 20050101
  5. ENCORTON [Suspect]
     Route: 065
  6. CYCLOSPORINE [Suspect]
     Route: 065

REACTIONS (12)
  - COMPLICATIONS OF TRANSPLANTED KIDNEY [None]
  - HAEMATOMA [None]
  - HAEMOGLOBIN DECREASED [None]
  - HEADACHE [None]
  - HERPES ZOSTER [None]
  - HYPERTENSION [None]
  - MENORRHAGIA [None]
  - NEUROTOXICITY [None]
  - RENAL ARTERY STENOSIS [None]
  - TREMOR [None]
  - URINARY TRACT INFECTION [None]
  - VULVOVAGINAL CANDIDIASIS [None]
